FAERS Safety Report 23937026 (Version 1)
Quarter: 2024Q2

REPORT INFORMATION
  Report Type: Spontaneous
  Country: US (occurrence: None)
  Receive Date: 20240603
  Receipt Date: 20240603
  Transmission Date: 20240716
  Serious: Yes (Other)
  Sender: FDA-Public Use
  Company Number: None

PATIENT
  Age: 41 Year
  Sex: Female
  Weight: 80.1 kg

DRUGS (1)
  1. MOUNJARO [Suspect]
     Active Substance: TIRZEPATIDE
     Indication: Type 2 diabetes mellitus
     Dates: start: 20221201, end: 20240430

REACTIONS (6)
  - Product use issue [None]
  - Blood glucose fluctuation [None]
  - Product use in unapproved indication [None]
  - Multiple organ dysfunction syndrome [None]
  - Blindness [None]
  - Product prescribing issue [None]

NARRATIVE: CASE EVENT DATE: 20240501
